FAERS Safety Report 4740622-1 (Version None)
Quarter: 2005Q3

REPORT INFORMATION
  Report Type: 
  Country: None (occurrence: None)
  Receive Date: 20050801
  Receipt Date: 20050525
  Transmission Date: 20060218
  Serious: Yes (Hospitalization)
  Sender: FDA-Public Use
  Company Number: 800382

PATIENT
  Age: 36 Year
  Sex: Female

DRUGS (9)
  1. EXTRANEAL [Suspect]
     Indication: THERAPEUTIC PROCEDURE
     Dosage: 2 L;EVERY DAY;IP
     Route: 033
     Dates: start: 20050309, end: 20050404
  2. DIANEAL [Concomitant]
  3. AVAPRO [Concomitant]
  4. TOPROL-XL [Concomitant]
  5. CAPTOPRIL [Concomitant]
  6. FUROSEMIDE [Concomitant]
  7. PHOSLO [Concomitant]
  8. LANTUS [Concomitant]
  9. NEPHROCAPS [Concomitant]

REACTIONS (3)
  - ABDOMINAL PAIN [None]
  - DERMATITIS EXFOLIATIVE [None]
  - RASH ERYTHEMATOUS [None]
